FAERS Safety Report 5328653-4 (Version None)
Quarter: 2007Q2

REPORT INFORMATION
  Report Type: 
  Country: None (occurrence: None)
  Receive Date: 20070518
  Receipt Date: 20070510
  Transmission Date: 20071010
  Serious: Yes (Hospitalization)
  Sender: FDA-Public Use
  Company Number: US-ROCHE-491467

PATIENT
  Age: 30 Year
  Sex: Male

DRUGS (3)
  1. PEGASYS [Suspect]
     Indication: HEPATITIS C
     Route: 065
     Dates: start: 20060701, end: 20070401
  2. RIBAVIRIN [Suspect]
     Indication: HEPATITIS C
     Route: 065
     Dates: start: 20060701, end: 20070401
  3. ZOLOFT [Concomitant]

REACTIONS (4)
  - COMPARTMENT SYNDROME [None]
  - FACTOR XIII INHIBITION [None]
  - HERPES SIMPLEX [None]
  - HYPERTENSION [None]
